FAERS Safety Report 7244683-X (Version None)
Quarter: 2011Q1

REPORT INFORMATION
  Report Type: 
  Country: None (occurrence: None)
  Receive Date: 20110125
  Receipt Date: 20110117
  Transmission Date: 20110831
  Serious: Yes (Other)
  Sender: FDA-Public Use
  Company Number: CA-BAYER-201032616NA

PATIENT
  Age: 42 Year
  Sex: Female

DRUGS (3)
  1. AVELOX [Suspect]
     Indication: BRONCHITIS
     Dosage: 400 MG, QD
     Route: 048
  2. COACTIFED [Concomitant]
     Dosage: 7.5 ML, PRN
     Route: 065
  3. AVELOX [Suspect]
     Indication: SINUSITIS

REACTIONS (4)
  - PARALYSIS [None]
  - HYPOAESTHESIA [None]
  - JOINT STIFFNESS [None]
  - ARTHRALGIA [None]
